FAERS Safety Report 25736589 (Version 1)
Quarter: 2025Q3

REPORT INFORMATION
  Report Type: Spontaneous
  Country: US (occurrence: None)
  Receive Date: 20250828
  Receipt Date: 20250828
  Transmission Date: 20251020
  Serious: Yes (Hospitalization)
  Sender: FDA-CTU
  Company Number: None

PATIENT
  Age: 75 Year
  Sex: Male

DRUGS (1)
  1. ABIRATERONE ACETATE [Suspect]
     Active Substance: ABIRATERONE ACETATE
     Indication: Prostate cancer
     Dosage: FREQUENCY : DAILY;?

REACTIONS (7)
  - Asthenia [None]
  - Hot flush [None]
  - Dizziness [None]
  - Tinnitus [None]
  - Weight decreased [None]
  - Blepharospasm [None]
  - Joint dislocation [None]
